FAERS Safety Report 15250744 (Version 1)
Quarter: 2018Q3

REPORT INFORMATION
  Report Type: Spontaneous
  Country: US (occurrence: US)
  Receive Date: 20180807
  Receipt Date: 20180807
  Transmission Date: 20181010
  Serious: Yes (Hospitalization)
  Sender: FDA-Public Use
  Company Number: PHHY2018US059540

PATIENT
  Age: 16 Year
  Sex: Female

DRUGS (1)
  1. OMEPRAZOLE. [Suspect]
     Active Substance: OMEPRAZOLE
     Indication: PRODUCT USED FOR UNKNOWN INDICATION
     Dosage: 18 DF, UNK (2 MG/ML)
     Route: 065

REACTIONS (8)
  - Electrocardiogram QT prolonged [Recovering/Resolving]
  - Hypernatraemia [Unknown]
  - Hypokalaemia [Unknown]
  - Accidental exposure to product [Unknown]
  - Metabolic alkalosis [Unknown]
  - Aspiration [Recovering/Resolving]
  - Retching [Unknown]
  - Diarrhoea [Unknown]
